FAERS Safety Report 17158518 (Version 3)
Quarter: 2019Q4

REPORT INFORMATION
  Report Type: Spontaneous
  Country: US (occurrence: US)
  Receive Date: 20191216
  Receipt Date: 20191227
  Transmission Date: 20200122
  Serious: Yes (Other)
  Sender: FDA-Public Use
  Company Number: US-PFIZER INC-2019539974

PATIENT
  Age: 64 Year
  Sex: Female
  Weight: 86.18 kg

DRUGS (2)
  1. KLONOPIN [Concomitant]
     Active Substance: CLONAZEPAM
     Indication: ANXIETY
     Dosage: 3 MG, DAILY (HALF TABLET (1MG) IN THE MORNING AND ONE 2MG TABLET AT NIGHT)
     Route: 048
  2. DESVENLAFAXINE SUCCINATE. [Suspect]
     Active Substance: DESVENLAFAXINE SUCCINATE
     Indication: DEPRESSION
     Dosage: 100 MG, 1X/DAY (IN THE MORNING)
     Route: 048

REACTIONS (2)
  - Drug ineffective [Unknown]
  - Depression [Unknown]
